FAERS Safety Report 4942736-X (Version None)
Quarter: 2006Q1

REPORT INFORMATION
  Report Type: 
  Country: None (occurrence: None)
  Receive Date: 20060314
  Receipt Date: 20060228
  Transmission Date: 20060701
  Serious: Yes (Hospitalization)
  Sender: FDA-Public Use
  Company Number: PHRM2006FR00917

PATIENT
  Age: 78 Year
  Sex: Female

DRUGS (7)
  1. LUDIOMIL 75 [Suspect]
     Dosage: 75 MG, BID
     Route: 048
     Dates: end: 20051005
  2. NOCTRAN [Suspect]
     Dosage: 1 DF, QD
     Route: 048
     Dates: end: 20051005
  3. XANAX [Suspect]
     Dosage: 0.25 MG, BID
     Route: 048
     Dates: end: 20051005
  4. SIBELIUM [Suspect]
     Dosage: 10 MG, QD
     Route: 048
     Dates: end: 20051005
  5. AVLOCARDYL [Suspect]
     Dosage: 1 DF, QD
     Route: 048
  6. PROZAC [Suspect]
     Dosage: UNK, UNK
     Route: 048
  7. SERC [Suspect]
     Route: 048
     Dates: end: 20051005

REACTIONS (4)
  - DRUG INTERACTION [None]
  - FALL [None]
  - GENERAL PHYSICAL HEALTH DETERIORATION [None]
  - WEIGHT DECREASED [None]
